FAERS Safety Report 8955283 (Version 1)
Quarter: 2012Q4

REPORT INFORMATION
  Report Type: Spontaneous
  Country: US (occurrence: None)
  Receive Date: 20121205
  Receipt Date: 20121205
  Transmission Date: 20130627
  Serious: Yes (Other)
  Sender: FDA-Public Use
  Company Number: None

PATIENT
  Age: 79 Year
  Sex: Female
  Weight: 57.15 kg

DRUGS (3)
  1. LEVEQUIN 750 MG. 1 DAY = 10 DAYS [Suspect]
     Indication: BRONCHIAL DISORDER
     Route: 048
     Dates: start: 20120831
  2. SIMVASTATIN [Concomitant]
  3. AMLODOPINE [Concomitant]

REACTIONS (6)
  - Muscle spasms [None]
  - Muscle spasms [None]
  - Muscle spasms [None]
  - Fatigue [None]
  - Chest pain [None]
  - Myalgia [None]
